FAERS Safety Report 5918255-0 (Version None)
Quarter: 2008Q4

REPORT INFORMATION
  Report Type: 
  Country: None (occurrence: None)
  Receive Date: 20081010
  Receipt Date: 20080408
  Transmission Date: 20090506
  Serious: Yes (Hospitalization)
  Sender: FDA-Public Use
  Company Number: 2008PL000146

PATIENT
  Age: 44 Year
  Sex: Female

DRUGS (2)
  1. IMURAN [Suspect]
  2. PREDNISONE [Concomitant]

REACTIONS (6)
  - DISEASE PROGRESSION [None]
  - HEPATIC CIRRHOSIS [None]
  - HEPATIC NEOPLASM MALIGNANT [None]
  - LIVER TRANSPLANT [None]
  - PRECANCEROUS CELLS PRESENT [None]
  - VIRAL INFECTION [None]
